FAERS Safety Report 13039122 (Version 2)
Quarter: 2017Q1

REPORT INFORMATION
  Report Type: Report from Study
  Country: DE (occurrence: DE)
  Receive Date: 20161219
  Receipt Date: 20170123
  Transmission Date: 20170428
  Serious: Yes (Other)
  Sender: FDA-Public Use
  Company Number: PHHY2016DE137208

PATIENT
  Age: 44 Year
  Sex: Female
  Weight: 120 kg

DRUGS (7)
  1. BUSCOPAN [Concomitant]
     Active Substance: BUTYLSCOPOLAMINE BROMIDE
     Indication: DYSMENORRHOEA
     Dosage: UNK UKN, PRN
     Route: 048
     Dates: start: 19840101
  2. MONOSTEP [Concomitant]
     Active Substance: ETHINYL ESTRADIOL\LEVONORGESTREL
     Indication: PRODUCT USED FOR UNKNOWN INDICATION
     Dosage: 1 DF, QD
     Route: 048
     Dates: start: 19960101
  3. COSENTYX [Suspect]
     Active Substance: SECUKINUMAB
     Dosage: 300 MG, PER APPLICATION
     Route: 065
     Dates: start: 20160602
  4. COSENTYX [Suspect]
     Active Substance: SECUKINUMAB
     Dosage: 300 MG, PER APPLICATION
     Route: 065
     Dates: start: 20160630
  5. COSENTYX [Suspect]
     Active Substance: SECUKINUMAB
     Indication: PSORIASIS
     Dosage: 300 MG, PER APPLICATION
     Route: 065
     Dates: start: 20160401
  6. IBUPROFEN. [Concomitant]
     Active Substance: IBUPROFEN
     Indication: HEADACHE
     Dosage: 600 MG, PRN
     Route: 048
     Dates: start: 19900101
  7. COSENTYX [Suspect]
     Active Substance: SECUKINUMAB
     Dosage: 300 MG, PER APPLICATION
     Route: 065
     Dates: start: 20160728

REACTIONS (2)
  - Urinary tract infection bacterial [Recovered/Resolved]
  - Nasopharyngitis [Recovered/Resolved]

NARRATIVE: CASE EVENT DATE: 20160621
